FAERS Safety Report 8985836 (Version 2)
Quarter: 2013Q2

REPORT INFORMATION
  Report Type: Report from Study
  Country: JP (occurrence: JP)
  Receive Date: 20121226
  Receipt Date: 20130517
  Transmission Date: 20140414
  Serious: Yes (Other)
  Sender: FDA-Public Use
  Company Number: JP-SHIRE-ALL1-2012-06504

PATIENT
  Age: 62 Year
  Sex: Male

DRUGS (18)
  1. 405 (LANTHANUM CARBONATE) [Suspect]
     Indication: HYPERPHOSPHATAEMIA
     Dosage: 2250 MG, UNKNOWN (PER DAY)
     Route: 048
     Dates: start: 20110216, end: 20110627
  2. 405 (LANTHANUM CARBONATE) [Suspect]
     Dosage: 750 MG, OTHER (IMMEDIATELY AFTER MEALS)
     Route: 048
     Dates: start: 20100118, end: 20100214
  3. 405 (LANTHANUM CARBONATE) [Suspect]
     Dosage: 1500 MG, UNKNOWN (PER DAY)
     Route: 048
     Dates: start: 20100215, end: 20110215
  4. CALTAN [Concomitant]
     Indication: HYPERPHOSPHATAEMIA
     Dosage: 4500 MG, UNKNOWN
     Route: 048
     Dates: end: 20100214
  5. CALTAN [Concomitant]
     Dosage: 6000 MG, UNKNOWN
     Route: 048
     Dates: start: 20100215
  6. RENAGEL                            /01459901/ [Concomitant]
     Indication: HYPERPHOSPHATAEMIA
     Dosage: 4500 MG, UNKNOWN
     Route: 048
  7. ROCALTROL [Concomitant]
     Indication: PRODUCT USED FOR UNKNOWN INDICATION
     Dosage: 1.5 ?G, 1X/WEEK
     Route: 042
     Dates: start: 20100319, end: 20100820
  8. ROCALTROL [Concomitant]
     Dosage: 3.0 ?G, 1X/WEEK
     Route: 042
     Dates: start: 20100820
  9. ROCALTROL [Concomitant]
     Dosage: 1.5 ?G, 1X/WEEK
     Route: 042
     Dates: start: 20110330, end: 2011
  10. ROCALTROL [Concomitant]
     Dosage: UNK, UNKNOWN
     Route: 042
     Dates: start: 2011, end: 2011
  11. ROCALTROL [Concomitant]
     Dosage: 1.5 ?G, 1X/WEEK
     Route: 042
     Dates: start: 2011, end: 20110627
  12. REGPARA [Concomitant]
     Indication: HYPERPARATHYROIDISM SECONDARY
     Dosage: 25 MG, UNKNOWN
     Route: 048
     Dates: start: 20100118, end: 20110321
  13. FAMOTIDINE [Concomitant]
     Indication: GASTRITIS
     Dosage: 10 MG, UNKNOWN
     Route: 048
  14. BAYASPIRIN [Concomitant]
     Indication: SHUNT THROMBOSIS
     Dosage: 100 MG, UNKNOWN
     Route: 048
  15. CINACALCET [Concomitant]
     Indication: PRODUCT USED FOR UNKNOWN INDICATION
     Dosage: 25 MG, 1X/DAY:QD
     Route: 065
     Dates: start: 20100118, end: 20110321
  16. CALCITROL                          /00508501/ [Concomitant]
     Indication: PRODUCT USED FOR UNKNOWN INDICATION
     Dosage: 0.5 ?G, OTHER (THREE TIMES A WEEK)
     Route: 065
     Dates: start: 20100319, end: 20100819
  17. CALCITROL                          /00508501/ [Concomitant]
     Dosage: 1 ?G, OTHER (THREE TIMES PER WEEK)
     Route: 065
     Dates: start: 20100820, end: 20110329
  18. CALCITROL                          /00508501/ [Concomitant]
     Dosage: 0.5 ?G, OTHER (THREE TIMES A WEEK)
     Route: 065
     Dates: start: 20110330, end: 20110627

REACTIONS (2)
  - Hyperparathyroidism secondary [Recovering/Resolving]
  - Condition aggravated [Recovering/Resolving]
